FAERS Safety Report 10243588 (Version 2)
Quarter: 2014Q2

REPORT INFORMATION
  Report Type: Spontaneous
  Country: US (occurrence: US)
  Receive Date: 20140618
  Receipt Date: 20140626
  Transmission Date: 20141212
  Serious: No
  Sender: FDA-Public Use
  Company Number: US-PFIZER INC-2014164363

PATIENT
  Age: 60 Year
  Sex: Male
  Weight: 117.91 kg

DRUGS (5)
  1. VIAGRA [Suspect]
     Indication: PULMONARY HYPERTENSION
     Dosage: 100 MG, DAILY
     Dates: start: 2006
  2. VIAGRA [Suspect]
     Indication: PULMONARY ARTERIAL HYPERTENSION
     Dosage: 50 MG, 3X/DAY
  3. VIAGRA [Suspect]
     Dosage: 50 MG, 5X/MONTH
  4. VIAGRA [Suspect]
     Dosage: 50 MG, UNK
  5. VIAGRA [Suspect]
     Dosage: SPLITTING THE 100MG TABLET OF SILDENAFIL CITRATE INTO HALF TWO TIMES A DAY

REACTIONS (3)
  - Weight decreased [Unknown]
  - Blood insulin decreased [Unknown]
  - Hypotension [Unknown]
